FAERS Safety Report 5516594-9 (Version None)
Quarter: 2007Q4

REPORT INFORMATION
  Report Type: 
  Country: None (occurrence: None)
  Receive Date: 20071109
  Receipt Date: 20071029
  Transmission Date: 20080405
  Serious: No
  Sender: FDA-Public Use
  Company Number: 2007-159365-NL

PATIENT
  Age: 52 Year
  Sex: Male

DRUGS (4)
  1. MIRTAZAPINE [Suspect]
     Indication: DEPRESSED MOOD
     Dosage: 15 MG, ORAL
     Route: 048
     Dates: start: 20061208, end: 20061211
  2. MIRTAZAPINE [Suspect]
     Indication: SLEEP DISORDER
     Dosage: 15 MG, ORAL
     Route: 048
     Dates: start: 20061208, end: 20061211
  3. ESOMEPRAZOLE [Suspect]
     Indication: DYSPEPSIA
     Dosage: 1 DF, ORAL
     Route: 048
     Dates: start: 20061208, end: 20061211
  4. ANTIBIOTICS [Concomitant]

REACTIONS (8)
  - CONJUNCTIVITIS [None]
  - HEADACHE [None]
  - MEASLES [None]
  - PAIN IN EXTREMITY [None]
  - PYREXIA [None]
  - STOMATITIS [None]
  - THROMBOCYTOPENIA [None]
  - VASCULITIS [None]
